FAERS Safety Report 8842474 (Version 2)
Quarter: 2012Q4

REPORT INFORMATION
  Report Type: 
  Country: FR (occurrence: FR)
  Receive Date: 20121016
  Receipt Date: 20121024
  Transmission Date: 20130627
  Serious: Yes (Hospitalization)
  Sender: FDA-Public Use
  Company Number: FR-009507513-1210FRA004600

PATIENT
  Age: 26 Year
  Sex: Female

DRUGS (7)
  1. ORGARAN [Suspect]
     Indication: VENOUS THROMBOSIS
     Dosage: UNK
     Route: 058
     Dates: start: 20120908, end: 20120909
  2. ORGARAN [Suspect]
     Indication: ANTICOAGULANT THERAPY
     Dosage: 750 IU, bid
     Dates: start: 20120924, end: 20120927
  3. PROGRAF [Concomitant]
     Indication: PRODUCT USED FOR UNKNOWN INDICATION
  4. ARANESP (DARBEPOETIN ALFA) [Concomitant]
     Indication: PRODUCT USED FOR UNKNOWN INDICATION
  5. ALDOMET (METHYLDOPA) [Concomitant]
     Indication: PRODUCT USED FOR UNKNOWN INDICATION
  6. IMUREL [Concomitant]
     Indication: PRODUCT USED FOR UNKNOWN INDICATION
  7. CORTANCYL [Concomitant]
     Indication: PRODUCT USED FOR UNKNOWN INDICATION

REACTIONS (1)
  - Toxic skin eruption [Recovered/Resolved]
